FAERS Safety Report 13503257 (Version 6)
Quarter: 2018Q4

REPORT INFORMATION
  Report Type: Spontaneous
  Country: US (occurrence: US)
  Receive Date: 20170502
  Receipt Date: 20181112
  Transmission Date: 20190204
  Serious: No
  Sender: FDA-Public Use
  Company Number: US-PFIZER INC-2017189712

PATIENT
  Age: 72 Year
  Sex: Female
  Weight: 306 kg

DRUGS (21)
  1. GENOTROPIN MQ [Suspect]
     Active Substance: SOMATROPIN
     Indication: HYPOPITUITARISM
     Dosage: UNK (CHANGED HER DOSE TO 0.1MG,ONE INJECTION AND THE OTHER HALF FOR THE NEXT INJECTION)
  2. CALCIUM CARBONATE WITH D3 [Concomitant]
     Indication: OSTEOARTHRITIS
     Dosage: UNK (600 PLUS)
     Route: 048
  3. DECADRON [Concomitant]
     Active Substance: DEXAMETHASONE
     Dosage: 0.5 MG, UNK
  4. LISINOPRIL. [Concomitant]
     Active Substance: LISINOPRIL
     Indication: HYPERTENSION
     Dosage: 20 MG, 1X/DAY
     Route: 048
  5. DEXAMETHASONE. [Concomitant]
     Active Substance: DEXAMETHASONE
     Indication: BLOOD CORTISOL
     Dosage: UNK, 1X/DAY (0.5MG TABLET, 1/2 TABLET BY MOUTH AT BEDTIME)
     Dates: start: 200711
  6. COENZYME Q10 [Concomitant]
     Active Substance: UBIDECARENONE
     Indication: CARDIAC DISORDER
     Dosage: 100 MG, UNK
  7. COENZYME Q10 [Concomitant]
     Active Substance: UBIDECARENONE
     Dosage: 1 DF, 1X/DAY (200-300MG)
     Route: 048
  8. SYNTHROID [Concomitant]
     Active Substance: LEVOTHYROXINE SODIUM
     Indication: SURGERY
     Dosage: 88 UG, 1X/DAY
     Route: 048
     Dates: start: 200711
  9. COUMADIN [Concomitant]
     Active Substance: WARFARIN SODIUM
     Dosage: 7.5 MG, UNK
  10. OMEPRAZOLE. [Concomitant]
     Active Substance: OMEPRAZOLE
     Indication: ABDOMINAL DISCOMFORT
     Dosage: 20 MG, 1X/DAY
     Route: 048
  11. LIPITOR [Concomitant]
     Active Substance: ATORVASTATIN CALCIUM
     Indication: BLOOD CHOLESTEROL DECREASED
     Dosage: 10 MG, UNK
  12. LIPITOR [Concomitant]
     Active Substance: ATORVASTATIN CALCIUM
     Dosage: 20 MG, 1X/DAY
     Route: 048
  13. CHLOR-TRIMETON [Concomitant]
     Active Substance: CHLORPHENIRAMINE MALEATE
     Dosage: 4 MG, UNK
     Route: 048
  14. CYTOMEL [Concomitant]
     Active Substance: LIOTHYRONINE SODIUM
     Dosage: 25 MG, UNK
  15. TRIPLE FLEX [CHONDROITIN SULFATE;GLUCOSAMINE HYDROCHLORIDE;METHYLSULFO [Concomitant]
     Indication: OSTEOARTHRITIS
     Dosage: 2 DF, DAILY
     Route: 048
  16. GENOTROPIN MQ [Suspect]
     Active Substance: SOMATROPIN
     Indication: HYPERPITUITARISM
     Dosage: 0.2 MG, DAILY (INJECT SUBCUTANEOUSLY AT BEDTIME)
     Route: 058
     Dates: start: 2010
  17. CALCIUM CARBONATE WITH D3 [Concomitant]
     Dosage: 1200 MG, DAILY
     Route: 048
  18. PRILOSEC [Concomitant]
     Active Substance: OMEPRAZOLE MAGNESIUM
     Dosage: 20 MG, UNK
  19. FOLTX [Concomitant]
     Active Substance: CYANOCOBALAMIN CO-57\FOLIC ACID\PYRIDOXINE HYDROCHLORIDE
     Indication: SUPPLEMENTATION THERAPY
     Dosage: 1 DF, 1X/DAY
     Route: 048
  20. MAGNESIUM GLYCINATE [Concomitant]
     Active Substance: MAGNESIUM GLYCINATE
     Indication: SUPPLEMENTATION THERAPY
     Dosage: 400 MG, DAILY (1 CAPSULE BY MOUTH MID-DAY, 1 CAPSULE BY MOUTH AT DINNER TIME)
     Route: 048
  21. LIOTHYRONINE [Concomitant]
     Active Substance: LIOTHYRONINE
     Indication: THYROID DISORDER
     Dosage: UNK , 1X/DAY (1/2 TABLET BY MOUTH IN THE MORNING)
     Dates: start: 200711

REACTIONS (6)
  - Urinary tract infection [Unknown]
  - Road traffic accident [Unknown]
  - Pain [Unknown]
  - Intentional product misuse [Unknown]
  - Arthralgia [Unknown]
  - Tarsal tunnel syndrome [Unknown]
